FAERS Safety Report 17369176 (Version 2)
Quarter: 2025Q3

REPORT INFORMATION
  Report Type: Report from Study
  Country: US (occurrence: US)
  Receive Date: 20200204
  Receipt Date: 20250721
  Transmission Date: 20251021
  Serious: Yes (Hospitalization)
  Sender: NOVARTIS
  Company Number: US-NOVARTISTESTPH-NVSC2020US021625

PATIENT
  Age: 57 Year
  Sex: Female
  Weight: 77 kg

DRUGS (7)
  1. SIMULECT [Suspect]
     Active Substance: BASILIXIMAB
     Indication: Transplant
     Dosage: 20 MG, BID
     Route: 042
     Dates: start: 20190911
  2. METHYLPREDNISOLONE [Suspect]
     Active Substance: METHYLPREDNISOLONE
     Indication: Transplant
     Dosage: UNK UNK, QD
     Route: 048
     Dates: start: 20190912
  3. PREDNISONE [Suspect]
     Active Substance: PREDNISONE
     Indication: Transplant
     Dosage: UNK UNK, QD
     Route: 048
     Dates: start: 20190912
  4. PROGRAF [Suspect]
     Active Substance: TACROLIMUS
     Indication: Renal transplant
     Dosage: UNK, Q12H
     Route: 048
     Dates: start: 20190913, end: 20191216
  5. PROGRAF [Suspect]
     Active Substance: TACROLIMUS
     Dosage: UNK, Q12H
     Route: 048
  6. BLESELUMAB [Suspect]
     Active Substance: BLESELUMAB
     Indication: Renal transplant
     Route: 042
     Dates: start: 20190911
  7. BLESELUMAB [Suspect]
     Active Substance: BLESELUMAB
     Route: 042
     Dates: start: 20190913

REACTIONS (1)
  - Polyomavirus-associated nephropathy [Not Recovered/Not Resolved]

NARRATIVE: CASE EVENT DATE: 20191231
